FAERS Safety Report 25405652 (Version 1)
Quarter: 2025Q2

REPORT INFORMATION
  Report Type: Spontaneous
  Country: CA (occurrence: CA)
  Receive Date: 20250606
  Receipt Date: 20250606
  Transmission Date: 20250717
  Serious: Yes (Disabling, Other)
  Sender: TEVA
  Company Number: US-TEVA-VS-3336248

PATIENT
  Age: 43 Year
  Sex: Male

DRUGS (12)
  1. PALIPERIDONE PALMITATE [Suspect]
     Active Substance: PALIPERIDONE PALMITATE
     Indication: Product used for unknown indication
     Route: 065
  2. INVEGA SUSTENNA [Suspect]
     Active Substance: PALIPERIDONE PALMITATE
     Indication: Product used for unknown indication
     Dosage: FOR 4 YEARS
     Route: 065
     Dates: start: 2021
  3. CLONAZEPAM [Suspect]
     Active Substance: CLONAZEPAM
     Indication: Product used for unknown indication
     Route: 065
     Dates: start: 20240422
  4. COGENTIN [Concomitant]
     Active Substance: BENZTROPINE MESYLATE
     Indication: Product used for unknown indication
     Route: 065
  5. ABILIFY MAINTENA [Suspect]
     Active Substance: ARIPIPRAZOLE
     Indication: Blood prolactin increased
     Dosage: QM
     Route: 030
  6. ABILIFY MAINTENA [Suspect]
     Active Substance: ARIPIPRAZOLE
     Indication: Blood prolactin increased
     Dosage: QM
     Route: 030
  7. ABILIFY MAINTENA [Suspect]
     Active Substance: ARIPIPRAZOLE
     Indication: Blood prolactin increased
     Dosage: QM
     Route: 030
     Dates: end: 2018
  8. ABILIFY MAINTENA [Suspect]
     Active Substance: ARIPIPRAZOLE
     Indication: Blood prolactin increased
     Route: 030
  9. ABILIFY MAINTENA [Suspect]
     Active Substance: ARIPIPRAZOLE
     Indication: Blood prolactin increased
     Route: 030
     Dates: start: 202502
  10. ABILIFY MAINTENA [Suspect]
     Active Substance: ARIPIPRAZOLE
     Indication: Blood prolactin increased
     Route: 030
     Dates: start: 2017
  11. ABILIFY MAINTENA [Suspect]
     Active Substance: ARIPIPRAZOLE
     Indication: Blood prolactin increased
     Dosage: QM
     Route: 030
     Dates: start: 2017
  12. ABILIFY [Suspect]
     Active Substance: ARIPIPRAZOLE
     Indication: Blood prolactin increased
     Route: 065

REACTIONS (34)
  - Hallucination, auditory [Not Recovered/Not Resolved]
  - Dysphonia [Not Recovered/Not Resolved]
  - Tooth injury [Not Recovered/Not Resolved]
  - Tendon disorder [Not Recovered/Not Resolved]
  - Drug ineffective for unapproved indication [Unknown]
  - Sexual dysfunction [Unknown]
  - Hypoaesthesia [Unknown]
  - Ear pain [Unknown]
  - Blood prolactin increased [Unknown]
  - Toothache [Recovered/Resolved]
  - Overdose [Not Recovered/Not Resolved]
  - Mental disorder [Unknown]
  - Screaming [Not Recovered/Not Resolved]
  - Impaired quality of life [Unknown]
  - Impaired work ability [Not Recovered/Not Resolved]
  - Product use in unapproved indication [Unknown]
  - Anxiety [Not Recovered/Not Resolved]
  - Hypotension [Unknown]
  - Aggression [Unknown]
  - Bruxism [Not Recovered/Not Resolved]
  - Libido disorder [Unknown]
  - Back disorder [Unknown]
  - Limb discomfort [Not Recovered/Not Resolved]
  - Ear disorder [Unknown]
  - Physical disability [Unknown]
  - Aphonia [Recovering/Resolving]
  - Alexithymia [Not Recovered/Not Resolved]
  - Incoherent [Unknown]
  - Somnolence [Not Recovered/Not Resolved]
  - Suicidal ideation [Unknown]
  - Housebound [Not Recovered/Not Resolved]
  - Asthenia [Not Recovered/Not Resolved]
  - Arthropathy [Unknown]
  - Loss of employment [Unknown]

NARRATIVE: CASE EVENT DATE: 20170101
